FAERS Safety Report 11839991 (Version 1)
Quarter: 2015Q4

REPORT INFORMATION
  Report Type: Spontaneous
  Country: PT (occurrence: PT)
  Receive Date: 20151216
  Receipt Date: 20151216
  Transmission Date: 20160305
  Serious: Yes (Hospitalization, Other)
  Sender: FDA-Public Use
  Company Number: PT-JNJFOC-20151200508

PATIENT
  Age: 13 Year

DRUGS (4)
  1. PARACETAMOL [Suspect]
     Active Substance: ACETAMINOPHEN
     Indication: PYREXIA
     Route: 065
  2. PARACETAMOL [Suspect]
     Active Substance: ACETAMINOPHEN
     Indication: COUGH
     Route: 065
  3. PARACETAMOL [Suspect]
     Active Substance: ACETAMINOPHEN
     Indication: CONJUNCTIVAL HYPERAEMIA
     Route: 065
  4. PARACETAMOL [Suspect]
     Active Substance: ACETAMINOPHEN
     Indication: RASH
     Route: 065

REACTIONS (12)
  - Product use issue [Unknown]
  - Mucosal hyperaemia [Recovering/Resolving]
  - Rash maculo-papular [Recovering/Resolving]
  - Pyrexia [Unknown]
  - Stevens-Johnson syndrome [Unknown]
  - Ocular hyperaemia [Unknown]
  - Respiratory disorder [Unknown]
  - Pneumonia mycoplasmal [Unknown]
  - Erythema multiforme [Unknown]
  - Off label use [Unknown]
  - C-reactive protein increased [Unknown]
  - Chest X-ray abnormal [Unknown]
